FAERS Safety Report 15000475 (Version 1)
Quarter: 2018Q3

REPORT INFORMATION
  Report Type: Spontaneous
  Country: US (occurrence: US)
  Receive Date: 20180612
  Receipt Date: 20180612
  Transmission Date: 20181010
  Serious: No
  Sender: FDA-Public Use
  Company Number: US-TORRENT-00006153

PATIENT
  Sex: Female

DRUGS (1)
  1. AMLODIPINE BESILATE,OLMESARTAN MEDOXOMIL [Suspect]
     Active Substance: AMLODIPINE BESYLATE\OLMESARTAN MEDOXOMIL
     Indication: PRODUCT USED FOR UNKNOWN INDICATION
     Dosage: 10/20 MG?NDC: 13668?312?30

REACTIONS (3)
  - Product quality issue [Unknown]
  - Poor quality drug administered [None]
  - Product odour abnormal [Unknown]

NARRATIVE: CASE EVENT DATE: 20180222
